FAERS Safety Report 17031374 (Version 1)
Quarter: 2019Q4

REPORT INFORMATION
  Report Type: Spontaneous
  Country: US (occurrence: US)
  Receive Date: 20191114
  Receipt Date: 20191114
  Transmission Date: 20200122
  Serious: No
  Sender: FDA-Public Use
  Company Number: US-PFIZER INC-2019486988

PATIENT
  Sex: Female

DRUGS (1)
  1. VITAMIN A [Suspect]
     Active Substance: VITAMIN A
     Dosage: UNK

REACTIONS (1)
  - Drug hypersensitivity [Unknown]
